FAERS Safety Report 4322218-9 (Version None)
Quarter: 2004Q1

REPORT INFORMATION
  Report Type: 
  Country: None (occurrence: None)
  Receive Date: 20040319
  Receipt Date: 20040305
  Transmission Date: 20041129
  Serious: Yes (Other)
  Sender: FDA-Public Use
  Company Number: 2004-DE-01088GD (0)

PATIENT
  Sex: 0

DRUGS (3)
  1. AZATHIOPRINE [Suspect]
     Indication: LUPUS NEPHRITIS
     Dosage: SEE TEXT (NR), PO
     Route: 048
  2. CYCLOPHOSPHAMIDE [Suspect]
     Indication: LUPUS NEPHRITIS
     Dosage: INDUCTION THERAPY WITH MONTHLY IV CYCLOPHOSPHAMIDE PULSES, IV
     Route: 042
  3. CORTICOSTEROIDS (CORTICOSTEROIDS) [Suspect]
     Indication: LUPUS NEPHRITIS
     Dosage: SEE TEXT, PO
     Route: 048

REACTIONS (1)
  - RENAL FAILURE CHRONIC [None]
